FAERS Safety Report 4665753-6 (Version None)
Quarter: 2005Q2

REPORT INFORMATION
  Report Type: 
  Country: None (occurrence: None)
  Receive Date: 20050517
  Receipt Date: 20050506
  Transmission Date: 20051028
  Serious: Yes (Hospitalization)
  Sender: FDA-Public Use
  Company Number: 214307

PATIENT
  Age: 45 Year
  Sex: Female
  Weight: 97 kg

DRUGS (2)
  1. XOLAIR [Suspect]
     Dosage: 300 MG, Q4W, SUBCUTANEOUS
     Route: 058
     Dates: start: 20041021
  2. ADVAIR (FLUTICASONE PROPIONATE, SALMETEROL XINAFOATE) [Concomitant]

REACTIONS (3)
  - ASCITES [None]
  - COXSACKIE VIRAL INFECTION [None]
  - LIVER FUNCTION TEST ABNORMAL [None]
